FAERS Safety Report 8849565 (Version 1)
Quarter: 2012Q4

REPORT INFORMATION
  Report Type: Spontaneous
  Country: US (occurrence: None)
  Receive Date: 20121018
  Receipt Date: 20121018
  Transmission Date: 20130627
  Serious: No
  Sender: FDA-Public Use
  Company Number: None

PATIENT
  Age: 33 Year
  Sex: Female

DRUGS (1)
  1. HUMIRA PEN 40 MG [Suspect]
     Indication: CROHN^S DISEASE
     Dosage: 40MG EVERY OTHER WEEK sq
     Route: 058
     Dates: start: 20120820, end: 20120911

REACTIONS (3)
  - Dry skin [None]
  - Rash [None]
  - Urticaria [None]
